FAERS Safety Report 25917070 (Version 1)
Quarter: 2025Q4

REPORT INFORMATION
  Report Type: Spontaneous
  Country: GB (occurrence: GB)
  Receive Date: 20251014
  Receipt Date: 20251014
  Transmission Date: 20260118
  Serious: Yes (Other)
  Sender: AUROBINDO
  Company Number: GB-MHRA-TPP9858120C26184329YC1759390813524

PATIENT
  Age: 80 Year
  Sex: Female
  Weight: 52 kg

DRUGS (9)
  1. AMLODIPINE BESYLATE [Suspect]
     Active Substance: AMLODIPINE BESYLATE
     Indication: Ill-defined disorder
     Dosage: ...(DO NOT EXCEED 5MG DUE TO LEG SW...
     Route: 065
     Dates: start: 20250912
  2. ALBUTEROL [Concomitant]
     Active Substance: ALBUTEROL
     Indication: Ill-defined disorder
     Dosage: INHALE ONE TO TWO DOSES UP TO FOUR TIMES A DAY ...
     Route: 065
     Dates: start: 20250217
  3. ATORVASTATIN [Concomitant]
     Active Substance: ATORVASTATIN
     Indication: Ill-defined disorder
     Dosage: TAKE 1 DAILY
     Route: 065
     Dates: start: 20250411
  4. FELODIPINE [Concomitant]
     Active Substance: FELODIPINE
     Indication: Ill-defined disorder
     Dosage: TAKE ONE DAILY
     Route: 065
     Dates: start: 20250520, end: 20250731
  5. LINAGLIPTIN [Concomitant]
     Active Substance: LINAGLIPTIN
     Indication: Ill-defined disorder
     Dosage: UNK UNK, ONCE A DAY
     Route: 065
     Dates: start: 20250522
  6. INDAPAMIDE [Concomitant]
     Active Substance: INDAPAMIDE
     Indication: Ill-defined disorder
     Dosage: TAKE ONE EACH MORNING
     Route: 065
     Dates: start: 20250529, end: 20250912
  7. CARBOCYSTEINE [Concomitant]
     Active Substance: CARBOCYSTEINE
     Indication: Ill-defined disorder
     Dosage: TAKE ONE CAPSULE THREE TIMES DAILY
     Route: 065
     Dates: start: 20250616
  8. Evolve ha [Concomitant]
     Indication: Ill-defined disorder
     Dosage: ONE DROP IN TO THE AFFECTED EYE(S) TWO TO FOUR ...
     Route: 065
     Dates: start: 20250616
  9. RAMIPRIL [Concomitant]
     Active Substance: RAMIPRIL
     Indication: Ill-defined disorder
     Dosage: TAKE ONE IN THE EVENING
     Route: 065
     Dates: start: 20250616

REACTIONS (1)
  - Joint swelling [Not Recovered/Not Resolved]
